FAERS Safety Report 9295302 (Version 1)
Quarter: 2013Q2

REPORT INFORMATION
  Report Type: Spontaneous
  Country: ZA (occurrence: ZA)
  Receive Date: 20130517
  Receipt Date: 20130517
  Transmission Date: 20140414
  Serious: Yes (Other)
  Sender: FDA-Public Use
  Company Number: ZA-JNJFOC-20130505497

PATIENT
  Sex: Female
  Weight: 70 kg

DRUGS (3)
  1. TOPAMAX [Suspect]
     Indication: EPILEPSY
     Route: 048
     Dates: start: 201302
  2. CAMCOLIT [Concomitant]
     Indication: EPILEPSY
     Route: 048
  3. TEGRETOL [Concomitant]
     Indication: EPILEPSY
     Route: 048

REACTIONS (3)
  - Dissociation [Recovered/Resolved]
  - Inappropriate affect [Recovered/Resolved]
  - Crying [Recovered/Resolved]
